FAERS Safety Report 26142202 (Version 1)
Quarter: 2025Q4

REPORT INFORMATION
  Report Type: Spontaneous
  Country: MX (occurrence: MX)
  Receive Date: 20251210
  Receipt Date: 20251210
  Transmission Date: 20260118
  Serious: Yes (Disabling, Other)
  Sender: NOVO NORDISK
  Company Number: MX-NOVOPROD-1581076

PATIENT
  Age: 68 Year
  Sex: Male
  Weight: 46 kg

DRUGS (1)
  1. TRESIBA [Suspect]
     Active Substance: INSULIN DEGLUDEC
     Indication: Type 2 diabetes mellitus
     Dosage: 24 IU, QD
     Route: 058
     Dates: start: 2015

REACTIONS (2)
  - Diabetic complication [Unknown]
  - Foot amputation [Unknown]

NARRATIVE: CASE EVENT DATE: 20180601
